FAERS Safety Report 20659538 (Version 9)
Quarter: 2023Q2

REPORT INFORMATION
  Report Type: Report from Study
  Country: US (occurrence: US)
  Receive Date: 20220331
  Receipt Date: 20230430
  Transmission Date: 20230721
  Serious: No
  Sender: FDA-Public Use
  Company Number: US-NOVARTISTESTPH-NVSC2022US073158

PATIENT
  Age: 77 Year
  Sex: Female

DRUGS (3)
  1. COSENTYX [Suspect]
     Active Substance: SECUKINUMAB
     Indication: Psoriasis
     Dosage: UNK
     Route: 065
  2. COSENTYX [Suspect]
     Active Substance: SECUKINUMAB
     Dosage: 150 MG, QMO
     Route: 030
     Dates: start: 20210402
  3. COSENTYX [Suspect]
     Active Substance: SECUKINUMAB
     Dosage: 150 MG, QMO
     Route: 065

REACTIONS (10)
  - Illness [Unknown]
  - Movement disorder [Unknown]
  - Malaise [Unknown]
  - COVID-19 [Recovered/Resolved]
  - Pruritus [Unknown]
  - Skin plaque [Unknown]
  - Influenza [Recovering/Resolving]
  - COVID-19 [Unknown]
  - Inappropriate schedule of product administration [Unknown]
  - Incorrect route of product administration [Unknown]

NARRATIVE: CASE EVENT DATE: 20221101
